FAERS Safety Report 8512775-0 (Version None)
Quarter: 2012Q3

REPORT INFORMATION
  Report Type: 
  Country: None (occurrence: None)
  Receive Date: 20120716
  Receipt Date: 20120626
  Transmission Date: 20120928
  Serious: No
  Sender: FDA-Public Use
  Company Number: US-ASTRAZENECA-2012SE43475

PATIENT
  Age: 80 Year
  Sex: Female
  Weight: 56.2 kg

DRUGS (10)
  1. SEROQUEL [Suspect]
     Indication: ANXIETY
     Route: 048
     Dates: end: 20120625
  2. SEROQUEL [Suspect]
     Indication: DEPRESSION
     Route: 048
     Dates: end: 20120625
  3. FORTEO [Concomitant]
     Indication: OSTEOPOROSIS
  4. AMBIEN [Concomitant]
  5. SEROQUEL [Suspect]
     Indication: MOOD SWINGS
     Route: 048
     Dates: end: 20120625
  6. SEROQUEL [Suspect]
     Route: 048
  7. SEROQUEL [Suspect]
     Route: 048
  8. SEROQUEL [Suspect]
     Route: 048
  9. ATENOLOL [Suspect]
     Route: 048
  10. THORAZINE [Concomitant]

REACTIONS (10)
  - OFF LABEL USE [None]
  - OEDEMA PERIPHERAL [None]
  - TREMOR [None]
  - LIMB DISCOMFORT [None]
  - DEPRESSION [None]
  - DIZZINESS [None]
  - JOINT SWELLING [None]
  - MOOD SWINGS [None]
  - FATIGUE [None]
  - MUSCLE SPASMS [None]
